FAERS Safety Report 24334495 (Version 1)
Quarter: 2024Q3

REPORT INFORMATION
  Report Type: Spontaneous
  Country: FR (occurrence: FR)
  Receive Date: 20240918
  Receipt Date: 20240918
  Transmission Date: 20241017
  Serious: Yes (Hospitalization, Other)
  Sender: MYLAN
  Company Number: None

PATIENT
  Age: 30 Year
  Sex: Female
  Weight: 56 kg

DRUGS (2)
  1. TRAMADOL [Suspect]
     Active Substance: TRAMADOL\TRAMADOL HYDROCHLORIDE
     Indication: Sciatica
     Dosage: 20 DOSAGE FORM, QD (10-30 CP PER DAY)
     Route: 048
     Dates: start: 2019, end: 202405
  2. OXAZEPAM [Concomitant]
     Active Substance: OXAZEPAM
     Dosage: 5 DOSAGE FORM, QD (5 TABLETS/D WHEN AVAILABLE)
     Route: 048

REACTIONS (2)
  - Drug dependence [Recovering/Resolving]
  - Drug withdrawal syndrome [Recovering/Resolving]

NARRATIVE: CASE EVENT DATE: 20240501
